FAERS Safety Report 5987576-8 (Version None)
Quarter: 2008Q4

REPORT INFORMATION
  Report Type: 
  Country: None (occurrence: None)
  Receive Date: 20081209
  Receipt Date: 20081201
  Transmission Date: 20090506
  Serious: No
  Sender: FDA-Public Use
  Company Number: JP-ASTRAZENECA-2008AP09295

PATIENT
  Age: 39 Year
  Sex: Male

DRUGS (3)
  1. OMEPRAL [Suspect]
     Indication: REFLUX OESOPHAGITIS
     Route: 048
     Dates: start: 20080821, end: 20080823
  2. SAIBOKU-TO [Suspect]
     Dosage: DOSE UNKNOWN
     Route: 048
     Dates: start: 20080821, end: 20080823
  3. GASLON N [Suspect]
     Dosage: DOSE UNKNOWN
     Route: 048
     Dates: start: 20080821, end: 20080823

REACTIONS (1)
  - ERYTHROMELALGIA [None]
